FAERS Safety Report 5628536-6 (Version None)
Quarter: 2008Q1

REPORT INFORMATION
  Report Type: 
  Country: None (occurrence: None)
  Receive Date: 20080215
  Receipt Date: 20080205
  Transmission Date: 20080703
  Serious: Yes (Hospitalization)
  Sender: FDA-Public Use
  Company Number: AE-PFIZER INC-2008011474

PATIENT
  Sex: Male

DRUGS (1)
  1. ZITHROMAX (SINGLE DOSE) [Suspect]
     Indication: UPPER RESPIRATORY TRACT INFECTION
     Dosage: DAILY DOSE:2GRAM
     Route: 048
     Dates: start: 20080105, end: 20080105

REACTIONS (1)
  - GASTRITIS [None]
